FAERS Safety Report 16608507 (Version 1)
Quarter: 2019Q3

REPORT INFORMATION
  Report Type: Spontaneous
  Country: GB (occurrence: GB)
  Receive Date: 20190722
  Receipt Date: 20190722
  Transmission Date: 20191004
  Serious: Yes (Other)
  Sender: FDA-Public Use
  Company Number: GB-PFIZER INC-2019304721

PATIENT
  Age: 48 Year
  Sex: Female

DRUGS (3)
  1. XELJANZ [Suspect]
     Active Substance: TOFACITINIB CITRATE
     Indication: COLITIS ULCERATIVE
     Dosage: 10 MG, 2X/DAY
  2. FRAGMIN [Suspect]
     Active Substance: DALTEPARIN SODIUM
  3. STEROIDS [Concomitant]
     Active Substance: UNSPECIFIED INGREDIENT

REACTIONS (8)
  - Peripheral swelling [Recovered/Resolved]
  - Malaise [Recovered/Resolved]
  - Injection site haemorrhage [Unknown]
  - Seizure [Recovered/Resolved]
  - Rash macular [Unknown]
  - Bleeding time abnormal [Unknown]
  - Pain [Recovered/Resolved]
  - Muscle spasms [Recovered/Resolved]
